FAERS Safety Report 18527282 (Version 1)
Quarter: 2020Q4

REPORT INFORMATION
  Report Type: Spontaneous
  Country: US (occurrence: US)
  Receive Date: 20201119
  Receipt Date: 20201119
  Transmission Date: 20210114
  Serious: No
  Sender: FDA-Public Use
  Company Number: None

PATIENT
  Age: 54 Year
  Sex: Female

DRUGS (1)
  1. BOTOX [Suspect]
     Active Substance: ONABOTULINUMTOXINA
     Dosage: ?          OTHER DOSE:100 UNITS;?
     Route: 023
     Dates: start: 202005

REACTIONS (2)
  - Injection site swelling [None]
  - Breast mass [None]

NARRATIVE: CASE EVENT DATE: 20200601
